FAERS Safety Report 7549722-4 (Version None)
Quarter: 2011Q2

REPORT INFORMATION
  Report Type: 
  Country: None (occurrence: None)
  Receive Date: 20110615
  Receipt Date: 20110606
  Transmission Date: 20111010
  Serious: Yes (Other)
  Sender: FDA-Public Use
  Company Number: US-JNJFOC-20110605411

PATIENT
  Age: 65 Year
  Sex: Female

DRUGS (2)
  1. LISTERINE ORIGINAL MOUTHWASH [Suspect]
     Indication: ALCOHOL USE
     Dosage: SIX TO EIGHT OUNCES AT A TIME
     Route: 048
  2. PAIN MEDICATION [Concomitant]
     Indication: BACK PAIN
     Route: 065

REACTIONS (2)
  - INCORRECT ROUTE OF DRUG ADMINISTRATION [None]
  - ALCOHOL ABUSE [None]
